FAERS Safety Report 9529872 (Version 1)
Quarter: 2013Q3

REPORT INFORMATION
  Report Type: Spontaneous
  Country: US (occurrence: US)
  Receive Date: 20130917
  Receipt Date: 20130917
  Transmission Date: 20140515
  Serious: No
  Sender: FDA-Public Use
  Company Number: US-PFIZER INC-2013267295

PATIENT
  Age: 59 Year
  Sex: Male
  Weight: 99.77 kg

DRUGS (3)
  1. LYRICA [Suspect]
     Indication: DIABETIC NEUROPATHY
     Dosage: 100 MG, 3X/DAY
     Route: 048
     Dates: start: 2012, end: 2013
  2. METFORMIN [Concomitant]
     Indication: DIABETES MELLITUS
     Dosage: UNK
  3. LISINOPRIL [Concomitant]
     Dosage: UNK

REACTIONS (2)
  - Blood cholesterol increased [Unknown]
  - Pain [Not Recovered/Not Resolved]
